FAERS Safety Report 8515335-0 (Version None)
Quarter: 2012Q3

REPORT INFORMATION
  Report Type: 
  Country: None (occurrence: None)
  Receive Date: 20120717
  Receipt Date: 20120706
  Transmission Date: 20120928
  Serious: Yes (Hospitalization)
  Sender: FDA-Public Use
  Company Number: US-PFIZER INC-2012132851

PATIENT
  Sex: Female
  Weight: 81.7 kg

DRUGS (12)
  1. CISPLATIN [Suspect]
     Indication: HEAD AND NECK CANCER
     Dosage: 200 MG (FREQUENCY UNKNOWN)
     Route: 042
     Dates: start: 20120514
  2. ATIVAN [Concomitant]
     Indication: NAUSEA
     Dosage: UNK
     Dates: start: 20120514
  3. EMEND TRIFOLD [Concomitant]
     Indication: VOMITING
     Dosage: UNK
     Dates: start: 20120514
  4. FLUOROURACIL [Suspect]
     Indication: HEAD AND NECK CANCER
     Dosage: 2000 MG, PER DAY FOR FOUR DAYS
     Route: 042
     Dates: start: 20120514, end: 20120518
  5. ATIVAN [Concomitant]
     Indication: ANXIETY
  6. CALCIUM CARBONATE [Concomitant]
     Indication: THYROID HORMONE REPLACEMENT THERAPY
  7. FLUOROURACIL [Suspect]
     Dosage: 500 MG/M2, PER DAY EVERY 4 DAYS
     Route: 042
  8. CALCITRIOL [Concomitant]
     Indication: MINERAL SUPPLEMENTATION
     Dosage: UNK
     Dates: start: 20120330
  9. DEXAMETHASONE [Concomitant]
     Indication: VOMITING
     Dosage: UNK
     Dates: start: 20120514
  10. SYNTHROID [Concomitant]
     Indication: THYROID HORMONE REPLACEMENT THERAPY
     Dosage: UNK
     Dates: start: 20120330
  11. CALCIUM CARBONATE [Concomitant]
     Indication: SUPPLEMENTATION THERAPY
     Dosage: UNK
     Dates: start: 20120330
  12. PROCHLORPERAZINE [Concomitant]
     Indication: VOMITING
     Dosage: UNK
     Dates: start: 20120514

REACTIONS (2)
  - VOMITING [None]
  - DEHYDRATION [None]
